FAERS Safety Report 12709400 (Version 1)
Quarter: 2016Q3

REPORT INFORMATION
  Report Type: Spontaneous
  Country: US (occurrence: None)
  Receive Date: 20160901
  Receipt Date: 20160901
  Transmission Date: 20161109
  Serious: Yes (Life-Threatening, Hospitalization)
  Sender: FDA-Public Use
  Company Number: None

PATIENT
  Age: 58 Year
  Sex: Male
  Weight: 93.9 kg

DRUGS (1)
  1. DOLUTEGRAVIR [Suspect]
     Active Substance: DOLUTEGRAVIR
     Indication: DIABETES MELLITUS
     Route: 048
     Dates: start: 20160511, end: 20160722

REACTIONS (5)
  - Sedation [None]
  - Hyperglycaemia [None]
  - Blood urea increased [None]
  - Blood creatinine increased [None]
  - Hepatic enzyme increased [None]

NARRATIVE: CASE EVENT DATE: 20160721
